FAERS Safety Report 18330904 (Version 1)
Quarter: 2020Q3

REPORT INFORMATION
  Report Type: Spontaneous
  Country: US (occurrence: US)
  Receive Date: 20200930
  Receipt Date: 20200930
  Transmission Date: 20201103
  Serious: No
  Sender: FDA-Public Use
  Company Number: US-ELI_LILLY_AND_COMPANY-US201809007343

PATIENT

DRUGS (1)
  1. VERZENIO [Suspect]
     Active Substance: ABEMACICLIB
     Indication: INFLAMMATORY CARCINOMA OF THE BREAST
     Dosage: UNK, UNKNOWN
     Route: 065
     Dates: start: 201808

REACTIONS (7)
  - Decreased appetite [Unknown]
  - Off label use [Unknown]
  - Fatigue [Unknown]
  - Hot flush [Unknown]
  - Nausea [Unknown]
  - Diarrhoea [Unknown]
  - Asthenia [Unknown]
